FAERS Safety Report 5572448-3 (Version None)
Quarter: 2007Q4

REPORT INFORMATION
  Report Type: 
  Country: None (occurrence: None)
  Receive Date: 20071222
  Receipt Date: 20071213
  Transmission Date: 20080405
  Serious: Yes (Other)
  Sender: FDA-Public Use
  Company Number: US-PFIZER INC-2007104795

PATIENT
  Sex: Female

DRUGS (5)
  1. NEURONTIN [Suspect]
  2. DILANTIN [Suspect]
  3. DEMEROL [Concomitant]
  4. VALIUM [Concomitant]
  5. NEXIUM [Concomitant]

REACTIONS (11)
  - AMNESIA [None]
  - BURNING SENSATION [None]
  - CEREBROVASCULAR ACCIDENT [None]
  - CONVULSION [None]
  - DRUG WITHDRAWAL SYNDROME [None]
  - HEADACHE [None]
  - HERPES ZOSTER [None]
  - ILL-DEFINED DISORDER [None]
  - INTERVERTEBRAL DISC PROTRUSION [None]
  - SKELETAL INJURY [None]
  - SURGERY [None]
